FAERS Safety Report 17104139 (Version 2)
Quarter: 2020Q1

REPORT INFORMATION
  Report Type: Spontaneous
  Country: JP (occurrence: JP)
  Receive Date: 20191203
  Receipt Date: 20200129
  Transmission Date: 20200409
  Serious: Yes (Other)
  Sender: FDA-Public Use
  Company Number: JP-GLAXOSMITHKLINE-JP2019JPN217341

PATIENT
  Age: 78 Year
  Sex: Male

DRUGS (20)
  1. MONTELUKAST SODIUM TABLET [Concomitant]
     Active Substance: MONTELUKAST SODIUM
     Indication: ASTHMA
     Dosage: 10 MG, 1D
     Route: 048
     Dates: start: 20191015, end: 20191211
  2. CERNILTON [Concomitant]
     Active Substance: HERBALS
     Dosage: UNK
     Route: 048
  3. HAEMOLEX [Concomitant]
     Dosage: UNK
     Route: 061
  4. BETANIS TABLETS [Concomitant]
     Dosage: UNK
     Route: 048
  5. THEOPHYLLINE SUSTAINED-RELEASE TABLETS [Concomitant]
     Indication: ASTHMA
     Dosage: 400 MG, 1D
     Route: 048
     Dates: start: 20191015, end: 20191211
  6. ASVERIN (TIPEPIDINE HIBENZATE) [Concomitant]
     Active Substance: TIPEPIDINE HIBENZATE
     Indication: ASTHMA
     Dosage: 3 DF, 1D
     Route: 048
     Dates: start: 20191015, end: 20191211
  7. XALATAN [Concomitant]
     Active Substance: LATANOPROST
     Dosage: UNK
     Route: 031
  8. SERETIDE [Suspect]
     Active Substance: FLUTICASONE PROPIONATE\SALMETEROL XINAFOATE
     Indication: ASTHMA
     Dosage: 250 ?G, BID
     Route: 055
     Dates: start: 20191015, end: 20191125
  9. GASSAAL [Concomitant]
     Dosage: UNK
     Route: 048
  10. AZILVA TABLETS [Concomitant]
     Dosage: UNK
     Route: 048
  11. OMEPRAZOLE. [Concomitant]
     Active Substance: OMEPRAZOLE
     Dosage: UNK
  12. BIOFERMIN [Concomitant]
     Active Substance: DIETARY SUPPLEMENT\PROBIOTICS
     Dosage: UNK
     Route: 048
  13. FEBURIC TABLETS [Concomitant]
     Active Substance: FEBUXOSTAT
     Dosage: UNK
     Route: 048
  14. METOCLOPRAMIDE TABLETS [Concomitant]
     Active Substance: METOCLOPRAMIDE
     Dosage: UNK
     Route: 048
  15. IMIDAPRIL HYDROCHLORIDE [Concomitant]
     Active Substance: IMIDAPRIL HYDROCHLORIDE
     Dosage: UNK
     Route: 048
  16. XARELTO TABLETS [Concomitant]
     Dosage: UNK
     Route: 048
  17. AMBROXOL HYDROCHLORIDE TABLETS [Concomitant]
     Indication: ASTHMA
     Dosage: 45 MG, 1D
     Route: 048
     Dates: start: 20191015, end: 20191211
  18. HYALEIN OPHTHALMIC SOLUTION [Concomitant]
     Dosage: UNK
     Route: 031
  19. MAGMITT TABLET [Concomitant]
     Dosage: UNK
     Route: 048
  20. BENIDIPINE HYDROCHLORIDE [Concomitant]
     Active Substance: BENIDIPINE HYDROCHLORIDE
     Dosage: UNK
     Route: 048

REACTIONS (1)
  - Oesophageal candidiasis [Unknown]

NARRATIVE: CASE EVENT DATE: 20191125
